FAERS Safety Report 6647291-4 (Version None)
Quarter: 2010Q1

REPORT INFORMATION
  Report Type: 
  Country: None (occurrence: None)
  Receive Date: 20100323
  Receipt Date: 20100312
  Transmission Date: 20100710
  Serious: Yes (Other)
  Sender: FDA-Public Use
  Company Number: B0605460A

PATIENT
  Sex: Male

DRUGS (2)
  1. RELENZA [Suspect]
     Indication: INFLUENZA
     Dosage: 10MG TWICE PER DAY
     Route: 055
     Dates: start: 20091109, end: 20091113
  2. MUCOSOLVAN [Concomitant]
     Indication: PRODUCTIVE COUGH
     Dosage: 5.4G PER DAY
     Route: 048
     Dates: start: 20091109, end: 20091113

REACTIONS (2)
  - HALLUCINATION [None]
  - SCREAMING [None]
